FAERS Safety Report 12412259 (Version 1)
Quarter: 2016Q2

REPORT INFORMATION
  Report Type: Spontaneous
  Country: BR (occurrence: BR)
  Receive Date: 20160527
  Receipt Date: 20160527
  Transmission Date: 20160815
  Serious: Yes (Hospitalization, Other)
  Sender: FDA-Public Use
  Company Number: BR-ASTRAZENECA-2016SE55400

PATIENT
  Sex: Male

DRUGS (7)
  1. FORXIGA [Suspect]
     Active Substance: DAPAGLIFLOZIN
     Indication: GLUCOSE TOLERANCE IMPAIRED
     Dosage: DAILY
     Route: 048
  2. UNKNOWN [Suspect]
     Active Substance: UNSPECIFIED INGREDIENT
     Indication: BLOOD CHOLESTEROL ABNORMAL
     Route: 048
     Dates: end: 201502
  3. ASPIRIN. [Concomitant]
     Active Substance: ASPIRIN
     Indication: ANTICOAGULANT THERAPY
     Route: 048
  4. SELOZOK [Suspect]
     Active Substance: METOPROLOL SUCCINATE
     Indication: HYPERTENSION
     Route: 048
  5. LOSARTAN. [Concomitant]
     Active Substance: LOSARTAN
     Indication: HYPERTENSION
     Route: 048
  6. SELOZOK [Suspect]
     Active Substance: METOPROLOL SUCCINATE
     Indication: HYPERTENSION
     Route: 048
  7. LOSARTAN. [Concomitant]
     Active Substance: LOSARTAN
     Indication: HYPERTENSION
     Route: 048

REACTIONS (3)
  - Coronary artery occlusion [Recovered/Resolved]
  - Palpitations [Recovered/Resolved]
  - Myalgia [Recovered/Resolved]
